FAERS Safety Report 22280022 (Version 1)
Quarter: 2023Q2

REPORT INFORMATION
  Report Type: Spontaneous
  Country: CA (occurrence: CA)
  Receive Date: 20230503
  Receipt Date: 20230503
  Transmission Date: 20230722
  Serious: Yes (Other)
  Sender: FDA-Public Use
  Company Number: None

PATIENT
  Age: 41 Year
  Sex: Female

DRUGS (82)
  1. HYDROMORPHONE HYDROCHLORIDE [Suspect]
     Active Substance: HYDROMORPHONE HYDROCHLORIDE
     Indication: Migraine
     Dosage: 1 DOSAGE FORM
     Route: 065
  2. HYDROMORPHONE HYDROCHLORIDE [Suspect]
     Active Substance: HYDROMORPHONE HYDROCHLORIDE
     Dosage: 1 DOSAGE FORM, Q12H
     Route: 065
  3. TRAMADOL HYDROCHLORIDE [Suspect]
     Active Substance: TRAMADOL HYDROCHLORIDE
     Indication: Product used for unknown indication
     Dosage: UNK
     Route: 065
  4. CODEINE [Suspect]
     Active Substance: CODEINE
     Indication: Migraine
     Dosage: UNK
     Route: 065
  5. ACETAMINOPHEN [Suspect]
     Active Substance: ACETAMINOPHEN
     Indication: Product used for unknown indication
     Dosage: UNK
     Route: 065
  6. ACETAMINOPHEN\BUTYLSCOPOLAMINE BROMIDE [Suspect]
     Active Substance: ACETAMINOPHEN\BUTYLSCOPOLAMINE BROMIDE
     Indication: Migraine
     Dosage: 10 MILLIGRAM
     Route: 065
  7. AMOXICILLIN [Suspect]
     Active Substance: AMOXICILLIN
     Indication: Product used for unknown indication
     Dosage: UNK
     Route: 065
  8. AZITHROMYCIN [Suspect]
     Active Substance: AZITHROMYCIN
     Indication: Migraine
     Dosage: UNK
     Route: 065
  9. AZITHROMYCIN [Suspect]
     Active Substance: AZITHROMYCIN
     Dosage: 500 MILLIGRAM
     Route: 065
  10. BOTULINUM TOXIN TYPE A [Suspect]
     Active Substance: BOTULINUM TOXIN TYPE A
     Indication: Product used for unknown indication
     Dosage: 200.0 INTERNATIONAL UNIT
     Route: 065
  11. CIPROFLOXACIN HYDROCHLORIDE [Suspect]
     Active Substance: CIPROFLOXACIN HYDROCHLORIDE
     Indication: Migraine
     Dosage: 2 DOSAGE FORM, DAILY
  12. CIPROFLOXACIN HYDROCHLORIDE [Suspect]
     Active Substance: CIPROFLOXACIN HYDROCHLORIDE
     Dosage: 500 MILLIGRAM
     Route: 065
  13. CIPROFLOXACIN HYDROCHLORIDE [Suspect]
     Active Substance: CIPROFLOXACIN HYDROCHLORIDE
     Dosage: 1 DOSAGE FORM, Q12H
     Route: 065
  14. CLARITHROMYCIN [Suspect]
     Active Substance: CLARITHROMYCIN
     Indication: Product used for unknown indication
     Dosage: 1 DOSAGE FORM, Q12H
     Route: 065
  15. CODEINE SULFATE [Suspect]
     Active Substance: CODEINE SULFATE
     Indication: Migraine
     Dosage: UNK
     Route: 065
  16. DEXAMETHASONE [Suspect]
     Active Substance: DEXAMETHASONE
     Indication: Migraine
     Dosage: 1.0 DOSAGE FORM, DAILY
  17. DEXAMETHASONE [Suspect]
     Active Substance: DEXAMETHASONE
     Dosage: 2 MILLIGRAM, DAILY
     Route: 065
  18. DEXAMETHASONE [Suspect]
     Active Substance: DEXAMETHASONE
     Dosage: UNK
  19. DULOXETINE HYDROCHLORIDE [Suspect]
     Active Substance: DULOXETINE HYDROCHLORIDE
     Indication: Migraine
     Dosage: 60 MILLIGRAM
     Route: 065
  20. DULOXETINE HYDROCHLORIDE [Suspect]
     Active Substance: DULOXETINE HYDROCHLORIDE
     Dosage: UNK
     Route: 065
  21. ESCITALOPRAM OXALATE [Suspect]
     Active Substance: ESCITALOPRAM OXALATE
     Indication: Migraine
     Dosage: 10 MILLIGRAM
     Route: 065
  22. ESOMEPRAZOLE MAGNESIUM [Suspect]
     Active Substance: ESOMEPRAZOLE MAGNESIUM
     Indication: Migraine
     Dosage: 40 MILLIGRAM
     Route: 065
  23. FLUCONAZOLE [Suspect]
     Active Substance: FLUCONAZOLE
     Indication: Migraine
     Dosage: UNK
     Route: 065
  24. FLUCONAZOLE [Suspect]
     Active Substance: FLUCONAZOLE
     Dosage: 1 DOSAGE FORM
     Route: 065
  25. BUTYLSCOPOLAMINE BROMIDE [Suspect]
     Active Substance: BUTYLSCOPOLAMINE BROMIDE
     Indication: Migraine
     Dosage: 1 DOSAGE FORM
     Route: 065
  26. BUTYLSCOPOLAMINE BROMIDE [Suspect]
     Active Substance: BUTYLSCOPOLAMINE BROMIDE
     Dosage: 10 MILLIGRAM
     Route: 065
  27. INDOMETHACIN [Suspect]
     Active Substance: INDOMETHACIN
     Indication: Migraine
     Dosage: 1 DOSAGE FORM, Q12H
     Route: 054
  28. LANSOPRAZOLE [Suspect]
     Active Substance: LANSOPRAZOLE
     Indication: Migraine
     Dosage: 30 MILLIGRAM
     Route: 065
  29. LISINOPRIL [Suspect]
     Active Substance: LISINOPRIL
     Indication: Product used for unknown indication
     Dosage: UNK
     Route: 065
  30. METOCLOPRAMIDE [Suspect]
     Active Substance: METOCLOPRAMIDE
     Indication: Migraine
     Dosage: UNK
     Route: 065
  31. METOCLOPRAMIDE [Suspect]
     Active Substance: METOCLOPRAMIDE
     Dosage: 10 MILLIGRAM
     Route: 065
  32. METOCLOPRAMIDE [Suspect]
     Active Substance: METOCLOPRAMIDE
     Dosage: 5 MILLIGRAM
     Route: 065
  33. MOMETASONE FUROATE [Suspect]
     Active Substance: MOMETASONE FUROATE
     Indication: Migraine
     Dosage: UNK
     Route: 065
  34. MOMETASONE FUROATE [Suspect]
     Active Substance: MOMETASONE FUROATE
     Dosage: 2 DOSAGE FORM, Q8H
     Route: 065
  35. PROPRANOLOL [Suspect]
     Active Substance: PROPRANOLOL HYDROCHLORIDE
     Indication: Migraine
     Dosage: 80 MILLIGRAM
     Route: 065
  36. PROPRANOLOL [Suspect]
     Active Substance: PROPRANOLOL HYDROCHLORIDE
     Dosage: 40 MILLIGRAM
     Route: 065
  37. RABEPRAZOLE [Suspect]
     Active Substance: RABEPRAZOLE
     Indication: Migraine
     Dosage: 1 DOSAGE FORM, Q12H
     Route: 048
  38. RIZATRIPTAN BENZOATE [Suspect]
     Active Substance: RIZATRIPTAN BENZOATE
     Indication: Migraine
     Dosage: 10 MILLIGRAM, DAILY
     Route: 065
  39. RIZATRIPTAN BENZOATE [Suspect]
     Active Substance: RIZATRIPTAN BENZOATE
     Dosage: 1.0 DOSAGE FORM
     Route: 065
  40. ALBUTEROL [Suspect]
     Active Substance: ALBUTEROL
     Indication: Product used for unknown indication
     Dosage: UNK
     Route: 065
  41. ALBUTEROL [Suspect]
     Active Substance: ALBUTEROL
     Dosage: 1 DOSAGE FORM, DAILY
     Route: 065
  42. SERTRALINE HYDROCHLORIDE [Suspect]
     Active Substance: SERTRALINE HYDROCHLORIDE
     Indication: Migraine
     Dosage: 50 MILLIGRAM
     Route: 065
  43. SUMATRIPTAN SUCCINATE [Suspect]
     Active Substance: SUMATRIPTAN SUCCINATE
     Indication: Migraine
     Dosage: 100 MILLIGRAM
     Route: 065
  44. SUMATRIPTAN SUCCINATE [Suspect]
     Active Substance: SUMATRIPTAN SUCCINATE
     Dosage: 60 MILLIGRAM
     Route: 065
  45. SUMATRIPTAN SUCCINATE [Suspect]
     Active Substance: SUMATRIPTAN SUCCINATE
     Dosage: UNK
     Route: 065
  46. TOPIRAMATE [Suspect]
     Active Substance: TOPIRAMATE
     Indication: Migraine
     Dosage: 25 MILLIGRAM
     Route: 065
  47. TRIMETHOPRIM [Suspect]
     Active Substance: TRIMETHOPRIM
     Indication: Migraine
     Dosage: UNK
     Route: 065
  48. VENLAFAXINE [Suspect]
     Active Substance: VENLAFAXINE HYDROCHLORIDE
     Indication: Migraine
     Dosage: 150 MILLIGRAM
     Route: 065
  49. VENLAFAXINE [Suspect]
     Active Substance: VENLAFAXINE HYDROCHLORIDE
     Dosage: 75 MILLIGRAM
     Route: 065
  50. ZOPICLONE [Suspect]
     Active Substance: ZOPICLONE
     Indication: Migraine
     Dosage: 5 MILLIGRAM
     Route: 065
  51. ZOPICLONE [Suspect]
     Active Substance: ZOPICLONE
     Dosage: 1.0 DOSAGE FORM
     Route: 065
  52. ACETAMINOPHEN\TRAMADOL HYDROCHLORIDE [Concomitant]
     Active Substance: ACETAMINOPHEN\TRAMADOL HYDROCHLORIDE
     Indication: Product used for unknown indication
     Dosage: UNK
     Route: 065
  53. AMOXICILLIN TRIHYDRATE [Concomitant]
     Active Substance: AMOXICILLIN
     Indication: Product used for unknown indication
     Dosage: 2.0 DOSAGE FORM, Q8H
     Route: 065
  54. LISINOPRIL [Concomitant]
     Active Substance: LISINOPRIL
     Indication: Product used for unknown indication
     Dosage: 1.0 DOSAGE FORM, DAILY
     Route: 065
  55. LISINOPRIL [Concomitant]
     Active Substance: LISINOPRIL
     Dosage: 2.0 DOSAGE FORM, DAILY
     Route: 065
  56. PREDNISONE [Concomitant]
     Active Substance: PREDNISONE
     Indication: Product used for unknown indication
     Dosage: 2.0 DOSAGE FORM, DAILY
     Route: 065
  57. ALBUTEROL SULFATE [Concomitant]
     Active Substance: ALBUTEROL SULFATE
     Indication: Product used for unknown indication
     Dosage: UNK
     Route: 065
  58. AZITHROMYCIN DIHYDRATE [Concomitant]
     Active Substance: AZITHROMYCIN DIHYDRATE
     Indication: Product used for unknown indication
     Dosage: 500.0 MILLIGRAM
     Route: 065
  59. CEFUROXIME AXETIL [Concomitant]
     Active Substance: CEFUROXIME AXETIL
     Indication: Product used for unknown indication
     Dosage: 1.0 DOSAGE FORM, Q12H
     Route: 065
  60. CEPHALEXIN [Concomitant]
     Active Substance: CEPHALEXIN
     Indication: Product used for unknown indication
     Dosage: 1.0 DOSAGE FORM
     Route: 065
  61. ACETAMINOPHEN\CODEINE PHOSPHATE [Concomitant]
     Active Substance: ACETAMINOPHEN\CODEINE PHOSPHATE
     Indication: Product used for unknown indication
     Dosage: UNK
     Route: 065
  62. DANAZOL [Concomitant]
     Active Substance: DANAZOL
     Indication: Product used for unknown indication
     Dosage: 1.0 DOSAGE FORM, DAILY
     Route: 065
  63. CYMBALTA [Concomitant]
     Active Substance: DULOXETINE HYDROCHLORIDE
     Indication: Product used for unknown indication
     Dosage: 1.0 DOSAGE FORM, DAILY
     Route: 065
  64. ELAVIL [Concomitant]
     Active Substance: AMITRIPTYLINE HYDROCHLORIDE
     Indication: Product used for unknown indication
     Dosage: 25 MILLIGRAM
     Route: 065
  65. FERROUS FUMARATE [Concomitant]
     Active Substance: FERROUS FUMARATE
     Indication: Product used for unknown indication
     Dosage: 300 MILLIGRAM
     Route: 065
  66. FLUOXETINE [Concomitant]
     Active Substance: FLUOXETINE HYDROCHLORIDE
     Indication: Product used for unknown indication
     Dosage: 20.0 MILLIGRAM
     Route: 065
  67. FLUTICASONE [Concomitant]
     Active Substance: FLUTICASONE
     Indication: Product used for unknown indication
     Dosage: 2.0 DOSAGE FORM, DAILY
     Route: 065
  68. FROVATRIPTAN SUCCINATE [Concomitant]
     Active Substance: FROVATRIPTAN SUCCINATE
     Indication: Product used for unknown indication
     Dosage: 1.0 DOSAGE FORM, DAILY
     Route: 065
  69. MACROBID [Concomitant]
     Active Substance: NITROFURANTOIN\NITROFURANTOIN MONOHYDRATE
     Indication: Product used for unknown indication
     Dosage: 100.0 MILLIGRAM
     Route: 065
  70. POLYETHYLENE GLYCOLS [Concomitant]
     Active Substance: POLYETHYLENE GLYCOLS
     Indication: Product used for unknown indication
     Dosage: UNK
     Route: 065
  71. METOCLOPRAMIDE [Concomitant]
     Active Substance: METOCLOPRAMIDE
     Indication: Product used for unknown indication
     Dosage: 1.0 DOSAGE FORM
     Route: 065
  72. METRONIDAZOLE [Concomitant]
     Active Substance: METRONIDAZOLE
     Indication: Migraine
     Dosage: 5.0 MILLIGRAM
     Route: 065
  73. MORPHINE SULFATE [Concomitant]
     Active Substance: MORPHINE SULFATE
     Indication: Product used for unknown indication
     Dosage: 1.0 DOSAGE FORM, DAILY
     Route: 065
  74. NAPROXEN [Concomitant]
     Active Substance: NAPROXEN
     Indication: Product used for unknown indication
     Dosage: 1.0 DOSAGE FORM, Q8H
     Route: 065
  75. NASONEX [Concomitant]
     Active Substance: MOMETASONE FUROATE
     Indication: Product used for unknown indication
     Dosage: 2.0 DOSAGE FORM, DAILY
     Route: 065
  76. NITROFURANTOIN [Concomitant]
     Active Substance: NITROFURANTOIN
     Indication: Product used for unknown indication
     Dosage: 100.0 MILLIGRAM
     Route: 065
  77. OSELTAMIVIR [Concomitant]
     Active Substance: OSELTAMIVIR
     Indication: Product used for unknown indication
     Dosage: 1.0 DOSAGE FORM, Q12H
     Route: 065
  78. PANTOPRAZOLE SODIUM [Concomitant]
     Active Substance: PANTOPRAZOLE SODIUM
     Indication: Product used for unknown indication
     Dosage: 10 DOSAGE FORM, Q12H
     Route: 065
  79. MORPHINE SULFATE [Concomitant]
     Active Substance: MORPHINE SULFATE
     Indication: Product used for unknown indication
     Dosage: UNK
     Route: 065
  80. SULFAMETHOXAZOLE AND TRIMETHOPRIM [Concomitant]
     Active Substance: SULFAMETHOXAZOLE\TRIMETHOPRIM
     Indication: Product used for unknown indication
     Dosage: 100.0 MILLIGRAM
     Route: 065
  81. SULFAMETHOXAZOLE AND TRIMETHOPRIM [Concomitant]
     Active Substance: SULFAMETHOXAZOLE\TRIMETHOPRIM
     Dosage: 2.0 DOSAGE FORM, DAILY
     Route: 065
  82. SULFAMETHOXAZOLE AND TRIMETHOPRIM [Concomitant]
     Active Substance: SULFAMETHOXAZOLE\TRIMETHOPRIM
     Dosage: 1.0 DOSAGE FORM, DAILY
     Route: 065

REACTIONS (9)
  - Angioedema [Recovered/Resolved with Sequelae]
  - Dysphonia [Recovered/Resolved with Sequelae]
  - Swelling face [Recovered/Resolved with Sequelae]
  - Swollen tongue [Recovered/Resolved with Sequelae]
  - Drug intolerance [Recovered/Resolved with Sequelae]
  - Product use in unapproved indication [Recovered/Resolved with Sequelae]
  - Drug ineffective for unapproved indication [Recovered/Resolved with Sequelae]
  - Headache [Recovered/Resolved with Sequelae]
  - Hypersensitivity [Recovered/Resolved with Sequelae]
